FAERS Safety Report 9962853 (Version 2)
Quarter: 2014Q1

REPORT INFORMATION
  Report Type: Report from Study
  Country: PR (occurrence: PR)
  Receive Date: 20140305
  Receipt Date: 20140305
  Transmission Date: 20141002
  Serious: No
  Sender: FDA-Public Use
  Company Number: PR-ABBVIE-12P-131-0906830-00

PATIENT
  Age: 33 Year
  Sex: Female

DRUGS (2)
  1. HUMIRA [Suspect]
     Indication: PSORIASIS
     Dates: start: 201201, end: 201303
  2. CLARITIN [Concomitant]
     Indication: SINUSITIS
     Route: 048

REACTIONS (4)
  - Injection site erythema [Unknown]
  - Pain [Unknown]
  - Wrong technique in drug usage process [Unknown]
  - Drug ineffective [Recovered/Resolved]
